FAERS Safety Report 25603883 (Version 3)
Quarter: 2025Q4

REPORT INFORMATION
  Report Type: Report from Study
  Country: US (occurrence: US)
  Receive Date: 20250725
  Receipt Date: 20251009
  Transmission Date: 20260118
  Serious: No
  Sender: AVERITAS
  Company Number: US-GRUNENTHAL-2025-110609

PATIENT
  Sex: Female

DRUGS (2)
  1. QUTENZA [Suspect]
     Active Substance: CAPSAICIN
     Indication: Diabetic neuropathy
     Dosage: UNK, ONCE
     Route: 061
     Dates: start: 20250519, end: 20250519
  2. QUTENZA [Suspect]
     Active Substance: CAPSAICIN
     Dosage: UNK, ONCE
     Route: 061
     Dates: start: 20250819, end: 20250819

REACTIONS (2)
  - Pain [Unknown]
  - Burning sensation [Unknown]
